FAERS Safety Report 22341054 (Version 1)
Quarter: 2023Q2

REPORT INFORMATION
  Report Type: Report from Study
  Country: US (occurrence: US)
  Receive Date: 20230518
  Receipt Date: 20230518
  Transmission Date: 20230722
  Serious: Yes (Other)
  Sender: FDA-Public Use
  Company Number: US-JAZZ-2022-US-014198

PATIENT
  Sex: Female

DRUGS (64)
  1. XYREM [Suspect]
     Active Substance: SODIUM OXYBATE
     Indication: Narcolepsy
     Dosage: 3.5 GRAM, BID
     Route: 048
  2. XYREM [Suspect]
     Active Substance: SODIUM OXYBATE
     Indication: Cataplexy
     Dosage: 4G/3.5G
  3. XYREM [Suspect]
     Active Substance: SODIUM OXYBATE
     Indication: Somnolence
  4. CELEBREX [Suspect]
     Active Substance: CELECOXIB
     Indication: Product used for unknown indication
     Dosage: UNK
  5. LORATADINE [Concomitant]
     Active Substance: LORATADINE
     Indication: Product used for unknown indication
     Dosage: UNK
     Dates: start: 20150406
  6. DICYCLOMINE [Concomitant]
     Active Substance: DICYCLOMINE HYDROCHLORIDE
     Indication: Product used for unknown indication
     Dosage: UNK
     Dates: start: 20150406
  7. GUAIFENESIN [Concomitant]
     Active Substance: GUAIFENESIN
     Indication: Product used for unknown indication
     Dosage: 100 MG/5 ML SOLN
     Dates: start: 20150406
  8. PROPRANOLOL [Concomitant]
     Active Substance: PROPRANOLOL HYDROCHLORIDE
     Indication: Product used for unknown indication
     Dosage: UNK
     Dates: start: 20150406
  9. MIRENA [Concomitant]
     Active Substance: LEVONORGESTREL
     Indication: Product used for unknown indication
     Dosage: UNK
     Dates: start: 20150406
  10. CALCIUM CARBASPIRIN [Concomitant]
     Indication: Product used for unknown indication
     Dosage: UNK
     Dates: start: 20150801
  11. CYMBALTA [Concomitant]
     Active Substance: DULOXETINE HYDROCHLORIDE
     Indication: Product used for unknown indication
     Dosage: UNK
     Dates: start: 20180720
  12. MIRAPEX [Concomitant]
     Active Substance: PRAMIPEXOLE DIHYDROCHLORIDE
     Indication: Product used for unknown indication
     Dosage: UNK
     Dates: start: 20180907
  13. LASIX [Concomitant]
     Active Substance: FUROSEMIDE
     Indication: Product used for unknown indication
     Dosage: UNK
     Dates: start: 20200522
  14. TIZANIDINE [Concomitant]
     Active Substance: TIZANIDINE
     Indication: Product used for unknown indication
     Dosage: UNK
  15. TIZANIDINE [Concomitant]
     Active Substance: TIZANIDINE
     Dosage: UNK
  16. TIZANIDINE [Concomitant]
     Active Substance: TIZANIDINE
     Dosage: UNK
  17. TIZANIDINE [Concomitant]
     Active Substance: TIZANIDINE
     Dosage: UNK
  18. TIZANIDINE [Concomitant]
     Active Substance: TIZANIDINE
     Dosage: UNK
  19. TIZANIDINE [Concomitant]
     Active Substance: TIZANIDINE
     Dosage: UNK
  20. TIZANIDINE [Concomitant]
     Active Substance: TIZANIDINE
     Dosage: UNK
  21. TIZANIDINE [Concomitant]
     Active Substance: TIZANIDINE
     Dosage: UNK
  22. CELECOXIB [Concomitant]
     Active Substance: CELECOXIB
     Indication: Product used for unknown indication
     Dosage: UNK
  23. CELECOXIB [Concomitant]
     Active Substance: CELECOXIB
     Dosage: UNK
  24. CELECOXIB [Concomitant]
     Active Substance: CELECOXIB
     Dosage: UNK
  25. CELECOXIB [Concomitant]
     Active Substance: CELECOXIB
     Dosage: UNK
  26. CELECOXIB [Concomitant]
     Active Substance: CELECOXIB
     Dosage: UNK
  27. CELECOXIB [Concomitant]
     Active Substance: CELECOXIB
     Dosage: UNK
  28. CELECOXIB [Concomitant]
     Active Substance: CELECOXIB
     Dosage: UNK
  29. CELECOXIB [Concomitant]
     Active Substance: CELECOXIB
     Dosage: UNK
  30. ARMODAFINIL [Concomitant]
     Active Substance: ARMODAFINIL
     Indication: Product used for unknown indication
     Dosage: UNK
  31. ARMODAFINIL [Concomitant]
     Active Substance: ARMODAFINIL
     Dosage: UNK
  32. ARMODAFINIL [Concomitant]
     Active Substance: ARMODAFINIL
     Dosage: UNK
  33. ARMODAFINIL [Concomitant]
     Active Substance: ARMODAFINIL
     Dosage: UNK
  34. ARMODAFINIL [Concomitant]
     Active Substance: ARMODAFINIL
     Dosage: UNK
  35. ARMODAFINIL [Concomitant]
     Active Substance: ARMODAFINIL
     Dosage: UNK
  36. ARMODAFINIL [Concomitant]
     Active Substance: ARMODAFINIL
     Dosage: UNK
  37. ARMODAFINIL [Concomitant]
     Active Substance: ARMODAFINIL
     Dosage: UNK
  38. NUVIGIL [Concomitant]
     Active Substance: ARMODAFINIL
     Indication: Product used for unknown indication
     Dosage: UNK
  39. NUVIGIL [Concomitant]
     Active Substance: ARMODAFINIL
     Dosage: UNK
  40. NUVIGIL [Concomitant]
     Active Substance: ARMODAFINIL
     Dosage: UNK
  41. NUVIGIL [Concomitant]
     Active Substance: ARMODAFINIL
     Dosage: UNK
  42. NUVIGIL [Concomitant]
     Active Substance: ARMODAFINIL
     Dosage: UNK
  43. NUVIGIL [Concomitant]
     Active Substance: ARMODAFINIL
     Dosage: UNK
  44. NUVIGIL [Concomitant]
     Active Substance: ARMODAFINIL
     Dosage: UNK
  45. NUVIGIL [Concomitant]
     Active Substance: ARMODAFINIL
     Dosage: UNK
  46. MELATONIN [Concomitant]
     Active Substance: MELATONIN
     Indication: Product used for unknown indication
     Dosage: UNK
  47. MELATONIN [Concomitant]
     Active Substance: MELATONIN
     Dosage: UNK
  48. MELATONIN [Concomitant]
     Active Substance: MELATONIN
     Dosage: UNK
  49. MELATONIN [Concomitant]
     Active Substance: MELATONIN
     Dosage: UNK
  50. MELATONIN [Concomitant]
     Active Substance: MELATONIN
     Dosage: UNK
  51. MELATONIN [Concomitant]
     Active Substance: MELATONIN
     Dosage: UNK
  52. MELATONIN [Concomitant]
     Active Substance: MELATONIN
     Dosage: UNK
  53. MELATONIN [Concomitant]
     Active Substance: MELATONIN
     Dosage: UNK
  54. ACETAMINOPHEN [Concomitant]
     Active Substance: ACETAMINOPHEN
     Indication: Product used for unknown indication
     Dosage: UNK
  55. ACETAMINOPHEN [Concomitant]
     Active Substance: ACETAMINOPHEN
     Dosage: UNK
  56. ACETAMINOPHEN [Concomitant]
     Active Substance: ACETAMINOPHEN
     Dosage: UNK
  57. ACETAMINOPHEN [Concomitant]
     Active Substance: ACETAMINOPHEN
     Dosage: UNK
  58. ACETAMINOPHEN [Concomitant]
     Active Substance: ACETAMINOPHEN
     Dosage: UNK
  59. ACETAMINOPHEN [Concomitant]
     Active Substance: ACETAMINOPHEN
     Dosage: UNK
  60. ACETAMINOPHEN [Concomitant]
     Active Substance: ACETAMINOPHEN
     Dosage: UNK
  61. ACETAMINOPHEN [Concomitant]
     Active Substance: ACETAMINOPHEN
     Dosage: UNK
  62. MULTIVITAMIN IRON [Concomitant]
     Indication: Product used for unknown indication
     Dosage: UNK
     Dates: start: 20150406
  63. SUMATRIPTAN SUCCINATE [Concomitant]
     Active Substance: SUMATRIPTAN SUCCINATE
     Indication: Product used for unknown indication
  64. VENTOLIN HFA [Concomitant]
     Active Substance: ALBUTEROL SULFATE
     Indication: Product used for unknown indication

REACTIONS (17)
  - Coeliac disease [Unknown]
  - Stress [Unknown]
  - Tic [Unknown]
  - Iron deficiency anaemia [Unknown]
  - Frustration tolerance decreased [Unknown]
  - Abdominal discomfort [Unknown]
  - Gastrooesophageal reflux disease [Unknown]
  - Intervertebral disc degeneration [Unknown]
  - Migraine [Unknown]
  - Arthralgia [Unknown]
  - Back pain [Unknown]
  - Fatigue [Unknown]
  - Panic attack [Unknown]
  - Oedema peripheral [Unknown]
  - Headache [Unknown]
  - Product administration interrupted [Unknown]
  - Intentional dose omission [Unknown]
